FAERS Safety Report 5220514-4 (Version None)
Quarter: 2007Q1

REPORT INFORMATION
  Report Type: 
  Country: None (occurrence: None)
  Receive Date: 20070125
  Receipt Date: 20070125
  Transmission Date: 20070707
  Serious: Yes (Hospitalization)
  Sender: FDA-Public Use
  Company Number: None

PATIENT
  Sex: 0
  Weight: 84.369 kg

DRUGS (4)
  1. COMPAZINE [Suspect]
     Dosage: IM PRIOR TO ADMISSION
     Route: 030
  2. VICODIN [Concomitant]
  3. IMODIUM [Concomitant]
  4. CLONIDINE [Concomitant]

REACTIONS (4)
  - DYSKINESIA [None]
  - EYE MOVEMENT DISORDER [None]
  - JOINT STIFFNESS [None]
  - NUCHAL RIGIDITY [None]
